FAERS Safety Report 20651401 (Version 1)
Quarter: 2022Q1

REPORT INFORMATION
  Report Type: Spontaneous
  Country: CN (occurrence: CN)
  Receive Date: 20220330
  Receipt Date: 20220330
  Transmission Date: 20220424
  Serious: Yes (Life-Threatening)
  Sender: FDA-Public Use
  Company Number: CN-ABBVIE-22K-035-4336795-00

PATIENT
  Age: 64 Year
  Sex: Female
  Weight: 50 kg

DRUGS (1)
  1. VALPROATE SODIUM [Suspect]
     Active Substance: VALPROATE SODIUM
     Indication: Muscle twitching
     Dosage: 0.4 G, Q8H (PUMP INJECTION)
     Route: 065
     Dates: start: 20200526, end: 20200603

REACTIONS (1)
  - Platelet count decreased [Recovering/Resolving]
